FAERS Safety Report 9781369 (Version 1)
Quarter: 2013Q4

REPORT INFORMATION
  Report Type: Spontaneous
  Country: TH (occurrence: TH)
  Receive Date: 20131224
  Receipt Date: 20131224
  Transmission Date: 20140711
  Serious: Yes (Hospitalization)
  Sender: FDA-Public Use
  Company Number: PHHY2013TH149446

PATIENT
  Age: 43 Year
  Sex: Female

DRUGS (2)
  1. WARFARIN [Suspect]
     Indication: ANTICOAGULANT THERAPY
  2. ACETYLSALICYLIC ACID [Suspect]
     Indication: ANTICOAGULANT THERAPY

REACTIONS (1)
  - Subarachnoid haemorrhage [Unknown]
